FAERS Safety Report 8924389 (Version 2)
Quarter: 2012Q4

REPORT INFORMATION
  Report Type: 
  Country: DE (occurrence: DE)
  Receive Date: 20121126
  Receipt Date: 20121128
  Transmission Date: 20130627
  Serious: Yes (Other)
  Sender: FDA-Public Use
  Company Number: DE-UCBSA-052675

PATIENT
  Age: 34 Year
  Sex: Female
  Weight: 65 kg

DRUGS (6)
  1. VIMPAT [Suspect]
     Indication: EPILEPSY
     Dates: start: 20120307
  2. VIMPAT [Suspect]
     Indication: EPILEPSY
     Dosage: 100-0-200 MG
     Dates: start: 20120228, end: 20120307
  3. VIMPAT [Suspect]
     Indication: EPILEPSY
     Dates: start: 201106, end: 20120228
  4. LAMOTRIGINE [Concomitant]
     Indication: EPILEPSY
     Dates: start: 201106
  5. LAMOTRIGINE [Concomitant]
     Indication: EPILEPSY
     Dosage: 50-0-75 MG, DAILY DOSE: 125 MG
  6. FOLSAN [Concomitant]
     Indication: PREGNANCY

REACTIONS (2)
  - Caesarean section [Unknown]
  - Pregnancy [Recovered/Resolved]
